FAERS Safety Report 6604094-4 (Version None)
Quarter: 2010Q1

REPORT INFORMATION
  Report Type: 
  Country: None (occurrence: None)
  Receive Date: 20100226
  Receipt Date: 20090526
  Transmission Date: 20100710
  Serious: No
  Sender: FDA-Public Use
  Company Number: A0784930A

PATIENT
  Age: 39 Year
  Sex: Female

DRUGS (2)
  1. LAMICTAL CD [Suspect]
     Indication: DRUG USE FOR UNKNOWN INDICATION
     Route: 048
  2. TRIVORA-21 [Suspect]
     Indication: MENSTRUAL DISORDER
     Dosage: 1TAB PER DAY
     Route: 048
     Dates: start: 20090426

REACTIONS (6)
  - AMENORRHOEA [None]
  - FLUID RETENTION [None]
  - OEDEMA PERIPHERAL [None]
  - SENSATION OF HEAVINESS [None]
  - WEIGHT FLUCTUATION [None]
  - WEIGHT INCREASED [None]
